FAERS Safety Report 15468388 (Version 1)
Quarter: 2018Q4

REPORT INFORMATION
  Report Type: Spontaneous
  Country: FR (occurrence: FR)
  Receive Date: 20181005
  Receipt Date: 20181005
  Transmission Date: 20190204
  Serious: Yes (Death)
  Sender: FDA-Public Use
  Company Number: FR-NAPPMUNDI-GBR-2018-0059780

PATIENT
  Age: 67 Year
  Sex: Male

DRUGS (3)
  1. HEPARINE SODIQUE [Suspect]
     Active Substance: HEPARIN SODIUM
     Indication: PULMONARY EMBOLISM
     Route: 042
     Dates: start: 20140223, end: 20140303
  2. OXYCONTIN [Suspect]
     Active Substance: OXYCODONE HYDROCHLORIDE
     Indication: PAIN
     Dosage: 40 MG, DAILY (STRENGTH 20MG)
     Route: 048
     Dates: start: 20140223, end: 20140303
  3. OXYNORM [Suspect]
     Active Substance: OXYCODONE HYDROCHLORIDE
     Indication: PAIN
     Dosage: 10 MG, Q2H
     Route: 048
     Dates: start: 20140223, end: 20140303

REACTIONS (3)
  - Respiratory distress [Fatal]
  - Anaemia [Fatal]
  - Epistaxis [Fatal]

NARRATIVE: CASE EVENT DATE: 20140303
